FAERS Safety Report 8780397 (Version 1)
Quarter: 2012Q4

REPORT INFORMATION
  Report Type: Spontaneous
  Country: US (occurrence: None)
  Receive Date: 20120905
  Receipt Date: 20120905
  Transmission Date: 20130627
  Serious: Yes (Other)
  Sender: FDA-Public Use
  Company Number: None

PATIENT
  Age: 42 Year
  Sex: Female
  Weight: 65.77 kg

DRUGS (3)
  1. CYMBALTA [Suspect]
     Indication: DEPRESSION
     Dosage: 1 x daily
     Route: 048
     Dates: start: 201011, end: 201208
  2. CYMBALTA [Suspect]
     Indication: ANXIETY
     Dosage: 1 x daily
     Route: 048
     Dates: start: 201011, end: 201208
  3. CYMBALTA [Concomitant]

REACTIONS (16)
  - Drug withdrawal syndrome [None]
  - Economic problem [None]
  - Influenza like illness [None]
  - Dizziness [None]
  - Nausea [None]
  - Vomiting [None]
  - Vertigo [None]
  - Suicidal ideation [None]
  - Vision blurred [None]
  - Migraine [None]
  - Balance disorder [None]
  - Coordination abnormal [None]
  - Speech disorder [None]
  - Myalgia [None]
  - Agitation [None]
  - Coordination abnormal [None]
